FAERS Safety Report 9866970 (Version 3)
Quarter: 2014Q1

REPORT INFORMATION
  Report Type: Report from Study
  Country: JP (occurrence: JP)
  Receive Date: 20140204
  Receipt Date: 20140220
  Transmission Date: 20141002
  Serious: Yes (Hospitalization)
  Sender: FDA-Public Use
  Company Number: JP-ASTRAZENECA-2014SE06413

PATIENT
  Age: 25119 Day
  Sex: Male
  Weight: 66.8 kg

DRUGS (4)
  1. AZD6140 [Suspect]
     Indication: PERIPHERAL ARTERIAL OCCLUSIVE DISEASE
     Route: 048
     Dates: start: 20130411, end: 20140126
  2. ARTIST [Concomitant]
     Indication: HYPERTENSION
     Route: 048
     Dates: start: 197608
  3. RENIVACE [Concomitant]
     Indication: HYPERTENSION
     Route: 048
     Dates: start: 198806
  4. PARIET [Concomitant]
     Indication: GASTRITIS PROPHYLAXIS
     Route: 048
     Dates: start: 199908

REACTIONS (1)
  - Ileus [Recovered/Resolved]
